FAERS Safety Report 9206815 (Version 1)
Quarter: 2013Q2

REPORT INFORMATION
  Report Type: Spontaneous
  Country: FR (occurrence: FR)
  Receive Date: 20130403
  Receipt Date: 20130403
  Transmission Date: 20140414
  Serious: Yes (Hospitalization, Other)
  Sender: FDA-Public Use
  Company Number: FR-009507513-1303FRA013955

PATIENT
  Age: 77 Year
  Sex: Female

DRUGS (13)
  1. SINGULAIR [Suspect]
     Indication: PRODUCT USED FOR UNKNOWN INDICATION
     Dosage: UNK
     Route: 048
  2. XOLAIR [Suspect]
     Indication: PRODUCT USED FOR UNKNOWN INDICATION
     Dosage: 1 DF, QM
     Dates: start: 201204, end: 20130111
  3. PROTELOS [Concomitant]
  4. SOLUPRED [Concomitant]
  5. SERETIDE [Concomitant]
     Dosage: 2 DF, BID
  6. OXEOL [Concomitant]
     Dosage: 10 MG, QD
  7. PRAVASTATIN SODIUM [Concomitant]
  8. INEXIUM [Concomitant]
     Dosage: 20 MG, QD
  9. VENTOLINE (ALBUTEROL) [Concomitant]
  10. AMLOR [Concomitant]
     Dosage: 5 MG, QD
  11. KARDEGIC [Concomitant]
     Dosage: 75 MG, QD
  12. TRAMADOL HYDROCHLORIDE [Concomitant]
     Dosage: 50 MG, QD
  13. SEROPLEX [Concomitant]
     Dosage: 10 MG, QD

REACTIONS (3)
  - Allergic granulomatous angiitis [Unknown]
  - Extremity necrosis [Unknown]
  - Peripheral coldness [Unknown]
